FAERS Safety Report 7604500-2 (Version None)
Quarter: 2011Q3

REPORT INFORMATION
  Report Type: 
  Country: None (occurrence: None)
  Receive Date: 20110712
  Receipt Date: 20110629
  Transmission Date: 20111222
  Serious: Yes (Other)
  Sender: FDA-Public Use
  Company Number: CA-JNJFOC-20110701261

PATIENT
  Sex: Female
  Weight: 59 kg

DRUGS (5)
  1. DILTIAZEM [Concomitant]
     Route: 065
  2. VITAMIN B-12 [Concomitant]
     Route: 065
  3. REMICADE [Suspect]
     Indication: CROHN'S DISEASE
     Route: 042
     Dates: start: 20100401
  4. ZOPICLONE [Concomitant]
     Route: 065
  5. LOMOTIL [Concomitant]
     Route: 065

REACTIONS (4)
  - DEHYDRATION [None]
  - RENAL FAILURE [None]
  - CHOLELITHIASIS [None]
  - FATIGUE [None]
